FAERS Safety Report 6632634-8 (Version None)
Quarter: 2010Q1

REPORT INFORMATION
  Report Type: 
  Country: None (occurrence: None)
  Receive Date: 20100312
  Receipt Date: 20100308
  Transmission Date: 20100710
  Serious: Yes (Hospitalization, Other)
  Sender: FDA-Public Use
  Company Number: JP-SANOFI-AVENTIS-2010SA013006

PATIENT
  Age: 71 Year
  Sex: Male

DRUGS (6)
  1. OXALIPLATIN [Suspect]
     Indication: COLON CANCER RECURRENT
     Route: 041
     Dates: start: 20060901, end: 20060901
  2. OXALIPLATIN [Suspect]
     Route: 041
     Dates: start: 20091126, end: 20091126
  3. XELODA [Suspect]
     Indication: COLON CANCER RECURRENT
     Route: 048
     Dates: start: 20091126, end: 20091210
  4. XELODA [Suspect]
     Route: 048
     Dates: start: 20091211, end: 20091225
  5. FLUMARIN [Concomitant]
  6. FUNGIZONE [Concomitant]

REACTIONS (7)
  - DECREASED APPETITE [None]
  - DIARRHOEA [None]
  - ENTEROCOLITIS [None]
  - GASTRIC ULCER [None]
  - MELAENA [None]
  - OESOPHAGEAL CANDIDIASIS [None]
  - VOMITING [None]
